FAERS Safety Report 4632221-7 (Version None)
Quarter: 2005Q2

REPORT INFORMATION
  Report Type: 
  Country: None (occurrence: None)
  Receive Date: 20050411
  Receipt Date: 20040621
  Transmission Date: 20051028
  Serious: No
  Sender: FDA-Public Use
  Company Number: US-GLAXOSMITHKLINE-A0515365A

PATIENT
  Age: 50 Year
  Sex: Female

DRUGS (3)
  1. TIMENTIN [Suspect]
     Indication: CELLULITIS
     Dosage: 3.1G THREE TIMES PER DAY
     Route: 042
     Dates: start: 20040616
  2. HEPARIN [Concomitant]
  3. SODIUM CHLORIDE [Concomitant]

REACTIONS (1)
  - EARLY MENARCHE [None]
